FAERS Safety Report 19135191 (Version 1)
Quarter: 2021Q2

REPORT INFORMATION
  Report Type: Other
  Country: US (occurrence: US)
  Receive Date: 20210414
  Receipt Date: 20210414
  Transmission Date: 20210717
  Serious: Yes (Other)
  Sender: FDA-Public Use
  Company Number: US-ROCHE-2809214

PATIENT
  Sex: Male

DRUGS (1)
  1. OCREVUS [Suspect]
     Active Substance: OCRELIZUMAB
     Indication: RELAPSING MULTIPLE SCLEROSIS
     Dosage: PRESCRIBED WITH 300 MG, DAY 1 AND 15 THEN 600 MG, EVERY 6 MONTHS?DATE OF TREATMENT: 08/APR/2021
     Route: 042
     Dates: start: 20210325

REACTIONS (4)
  - Infection [Not Recovered/Not Resolved]
  - Epididymitis [Not Recovered/Not Resolved]
  - Abdominal pain lower [Not Recovered/Not Resolved]
  - Testicular pain [Not Recovered/Not Resolved]
